FAERS Safety Report 7948189-1 (Version None)
Quarter: 2011Q4

REPORT INFORMATION
  Report Type: 
  Country: None (occurrence: None)
  Receive Date: 20111121
  Receipt Date: 20111115
  Transmission Date: 20120403
  Serious: Yes (Other)
  Sender: FDA-Public Use
  Company Number: A0944589A

PATIENT
  Age: 80 Year
  Sex: Female

DRUGS (1)
  1. PRAMOCAINE HYDROCHLORIDE (FORMULATION UNKNOWN) (PRAMOCAINE HYDROCHLORI [Suspect]
     Dosage: TOPICAL
     Route: 061

REACTIONS (3)
  - IMPAIRED HEALING [None]
  - APPLICATION SITE EXFOLIATION [None]
  - APPLICATION SITE ATROPHY [None]
